FAERS Safety Report 20008798 (Version 1)
Quarter: 2021Q4

REPORT INFORMATION
  Report Type: Report from Study
  Country: CA (occurrence: CA)
  Receive Date: 20211028
  Receipt Date: 20211028
  Transmission Date: 20220304
  Serious: Yes (Other)
  Sender: FDA-Public Use
  Company Number: CA-TAKEDA-2021TUS066012

PATIENT
  Age: 24 Year
  Sex: Female

DRUGS (4)
  1. VEDOLIZUMAB [Suspect]
     Active Substance: VEDOLIZUMAB
     Indication: Crohn^s disease
     Dosage: 300 MILLIGRAM
     Route: 042
     Dates: start: 20210105
  2. CETIRIZINE HYDROCHLORIDE [Concomitant]
     Active Substance: CETIRIZINE HYDROCHLORIDE
     Indication: Pruritus
     Dosage: 20 MILLIGRAM
  3. Alysena [Concomitant]
     Indication: Contraception
     Dosage: UNK
  4. FERAMAX [Concomitant]
     Active Substance: IRON\POLYSACCHARIDES
     Indication: Anaemia
     Dosage: UNK

REACTIONS (1)
  - Intestinal stenosis [Unknown]
